FAERS Safety Report 7319574-6 (Version None)
Quarter: 2011Q1

REPORT INFORMATION
  Report Type: 
  Country: None (occurrence: None)
  Receive Date: 20110228
  Receipt Date: 20100526
  Transmission Date: 20110831
  Serious: No
  Sender: FDA-Public Use
  Company Number: A0861483A

PATIENT
  Age: 56 Year
  Sex: Female

DRUGS (5)
  1. THYROID TAB [Concomitant]
  2. HORMONES [Concomitant]
  3. XANAX [Concomitant]
  4. LAMICTAL [Suspect]
     Indication: ANXIETY
     Dosage: 25MG PER DAY
     Route: 048
     Dates: start: 20100416, end: 20100501
  5. EXFORGE [Concomitant]

REACTIONS (2)
  - JOINT SWELLING [None]
  - MUSCLE SPASMS [None]
